FAERS Safety Report 22360021 (Version 3)
Quarter: 2024Q3

REPORT INFORMATION
  Report Type: Spontaneous
  Country: US (occurrence: US)
  Receive Date: 20230524
  Receipt Date: 20240808
  Transmission Date: 20241016
  Serious: Yes (Other)
  Sender: OTSUKA
  Company Number: US-OTSUKA-2023_013142

PATIENT
  Sex: Male
  Weight: 68.04 kg

DRUGS (2)
  1. ABILIFY [Suspect]
     Active Substance: ARIPIPRAZOLE
     Indication: Schizoaffective disorder
     Dosage: UNK
     Route: 065
  2. ABILIFY MAINTENA [Suspect]
     Active Substance: ARIPIPRAZOLE
     Indication: Schizoaffective disorder
     Dosage: UNK EVERY 3 MONTHS
     Route: 065

REACTIONS (5)
  - Suicidal ideation [Unknown]
  - Obsessive-compulsive disorder [Unknown]
  - Hypersexuality [Unknown]
  - Inappropriate schedule of product administration [Unknown]
  - Off label use [Unknown]
